FAERS Safety Report 25505848 (Version 2)
Quarter: 2025Q3

REPORT INFORMATION
  Report Type: Spontaneous
  Country: CA (occurrence: CA)
  Receive Date: 20250702
  Receipt Date: 20250717
  Transmission Date: 20251021
  Serious: Yes (Hospitalization, Other)
  Sender: APOTEX
  Company Number: CA-APOTEX-2025AP009093

PATIENT
  Age: 80 Year
  Sex: Male

DRUGS (5)
  1. DILTIAZEM [Interacting]
     Active Substance: DILTIAZEM
     Indication: Atrial fibrillation
     Dosage: 360 MILLIGRAM, QD
     Route: 065
  2. DILTIAZEM [Interacting]
     Active Substance: DILTIAZEM
     Dosage: 480 MILLIGRAM, QD
     Route: 065
  3. ENZALUTAMIDE [Interacting]
     Active Substance: ENZALUTAMIDE
     Indication: Hormone-dependent prostate cancer
     Route: 065
  4. DABIGATRAN [Concomitant]
     Active Substance: DABIGATRAN
     Indication: Anticoagulant therapy
     Route: 065
  5. ESCITALOPRAM [Concomitant]
     Active Substance: ESCITALOPRAM OXALATE
     Indication: Product used for unknown indication
     Route: 065

REACTIONS (4)
  - Arrhythmia induced cardiomyopathy [Recovering/Resolving]
  - Cardiac failure [Recovering/Resolving]
  - Drug interaction [Recovered/Resolved]
  - Tachycardia [Recovered/Resolved]
